FAERS Safety Report 5123455-6 (Version None)
Quarter: 2006Q4

REPORT INFORMATION
  Report Type: 
  Country: None (occurrence: None)
  Receive Date: 20061005
  Receipt Date: 20060927
  Transmission Date: 20070319
  Serious: Yes (Other)
  Sender: FDA-Public Use
  Company Number: 2006113573

PATIENT

DRUGS (5)
  1. XALATAN [Suspect]
     Indication: GLAUCOMA
     Dosage: 1 DROP (1 DROP, 1 IN 1 D), INTRAOCULAR
     Route: 031
     Dates: start: 20060801, end: 20060801
  2. GLUCOFORMIN (METFORMIN HYDROCHLORIDE) [Concomitant]
  3. INSULIN HUMAN (INSULIN HUMAN) [Concomitant]
  4. INSULIN, REGULAR (INSULIN) [Concomitant]
  5. ALPHAGAN [Concomitant]

REACTIONS (3)
  - CONDITION AGGRAVATED [None]
  - GLAUCOMA [None]
  - HEADACHE [None]
